FAERS Safety Report 6629490-0 (Version None)
Quarter: 2010Q1

REPORT INFORMATION
  Report Type: 
  Country: None (occurrence: None)
  Receive Date: 20100311
  Receipt Date: 20090722
  Transmission Date: 20100710
  Serious: No
  Sender: FDA-Public Use
  Company Number: US-BIOGENIDEC-2009BI022655

PATIENT
  Age: 47 Year
  Sex: Female

DRUGS (3)
  1. AVONEX [Suspect]
     Indication: MULTIPLE SCLEROSIS
     Route: 030
     Dates: start: 20081001
  2. ZYPREXA [Concomitant]
     Indication: HALLUCINATION, AUDITORY
  3. BLOOD PRESSURE MEDICATION (NOS) [Concomitant]
     Indication: HYPERTENSION

REACTIONS (7)
  - BALANCE DISORDER [None]
  - FACIAL PALSY [None]
  - GAIT DISTURBANCE [None]
  - MONOPLEGIA [None]
  - PAIN [None]
  - PARAESTHESIA [None]
  - TREMOR [None]
